FAERS Safety Report 9804162 (Version 1)
Quarter: 2014Q1

REPORT INFORMATION
  Report Type: Report from Study
  Country: BR (occurrence: BR)
  Receive Date: 20140108
  Receipt Date: 20140108
  Transmission Date: 20141002
  Serious: Yes (Other)
  Sender: FDA-Public Use
  Company Number: PHHY2014BR001300

PATIENT
  Age: 50 Year
  Sex: Male
  Weight: 67 kg

DRUGS (6)
  1. DIOVAN [Suspect]
     Indication: BLOOD PRESSURE INADEQUATELY CONTROLLED
     Dosage: 1 DF (160MG), QD (IN THE MORNING)
     Route: 048
  2. DIOVAN [Suspect]
     Dosage: 1 DF (160MG), BID (1 DF AT 11 AM 1 DF AT 4 AM)
     Dates: start: 20131227, end: 20131227
  3. AMLODIPINE [Suspect]
     Dosage: 10 MG, UNK
  4. AMLODIPINE [Suspect]
     Dosage: 10 MG, UNK
  5. DIUPRES [Suspect]
     Indication: BLOOD PRESSURE ABNORMAL
     Dosage: 1 DF (5MG AMILORIDE/25MG CHLORTHALIDONE), QD (IN THE MORNING)
     Route: 048
  6. DIUPRES [Suspect]
     Dosage: 1 DF (5MG AMILORIDE/25MG CHLORTHALIDONE), QD (12 AM)
     Dates: start: 20131227

REACTIONS (6)
  - Nervous system disorder [Recovering/Resolving]
  - Blood pressure increased [Recovering/Resolving]
  - Headache [Not Recovered/Not Resolved]
  - Neck pain [Recovering/Resolving]
  - Eye pain [Recovering/Resolving]
  - Insomnia [Recovering/Resolving]
